FAERS Safety Report 4708968-0 (Version None)
Quarter: 2005Q3

REPORT INFORMATION
  Report Type: 
  Country: None (occurrence: None)
  Receive Date: 20050705
  Receipt Date: 20050622
  Transmission Date: 20060218
  Serious: Yes (Death, Hospitalization)
  Sender: FDA-Public Use
  Company Number: 2005086301

PATIENT
  Age: 63 Year
  Sex: Male
  Weight: 93 kg

DRUGS (6)
  1. ATORVASTATIN CALCIUM [Suspect]
     Indication: ILL-DEFINED DISORDER
     Dosage: 10 MG 1 IN 1 D
  2. OMEPRAZOLE [Suspect]
     Indication: ILL-DEFINED DISORDER
     Dates: start: 20050101, end: 20050201
  3. EFFERALGAN CODEINE (CODEINE PHOSPHATE, PARACETAMOL) [Suspect]
     Indication: OSTEOARTHRITIS
  4. CELEBREX [Suspect]
     Indication: ILL-DEFINED DISORDER
     Dates: start: 20041101, end: 20050101
  5. DICLOFENAC SODIUM [Suspect]
     Indication: ILL-DEFINED DISORDER
     Dates: end: 20050201
  6. VIOXX [Suspect]
     Indication: ILL-DEFINED DISORDER
     Dates: start: 20030101, end: 20050101

REACTIONS (19)
  - ABDOMINAL PAIN [None]
  - ATRIAL FIBRILLATION [None]
  - BLOOD PRESSURE DECREASED [None]
  - CARDIOGENIC SHOCK [None]
  - DIARRHOEA [None]
  - GASTROENTERITIS VIRAL [None]
  - HYPERCHOLESTEROLAEMIA [None]
  - HYPOKALAEMIA [None]
  - IATROGENIC INJURY [None]
  - LUNG DISORDER [None]
  - MALAISE [None]
  - RENAL DISORDER [None]
  - RENAL TUBULAR ACIDOSIS [None]
  - SYNCOPE [None]
  - TORSADE DE POINTES [None]
  - VENTRICULAR EXTRASYSTOLES [None]
  - VENTRICULAR FIBRILLATION [None]
  - VENTRICULAR TACHYCARDIA [None]
  - VOMITING [None]
